FAERS Safety Report 5384421-9 (Version None)
Quarter: 2007Q3

REPORT INFORMATION
  Report Type: 
  Country: None (occurrence: None)
  Receive Date: 20070711
  Receipt Date: 20070102
  Transmission Date: 20080115
  Serious: No
  Sender: FDA-Public Use
  Company Number: US-AMGEN-KDL205350

PATIENT
  Sex: Female

DRUGS (1)
  1. KINERET [Suspect]
     Route: 058
     Dates: start: 20030101

REACTIONS (4)
  - ARTHRALGIA [None]
  - FALL [None]
  - JOINT STIFFNESS [None]
  - JOINT SWELLING [None]
